FAERS Safety Report 9030729 (Version 2)
Quarter: 2013Q1

REPORT INFORMATION
  Report Type: Report from Study
  Country: US (occurrence: US)
  Receive Date: 20130123
  Receipt Date: 20130129
  Transmission Date: 20140127
  Serious: Yes (Other)
  Sender: FDA-Public Use
  Company Number: US-ABBOTT-13P-163-1038345-00

PATIENT
  Age: 44 Year
  Sex: Female

DRUGS (3)
  1. HUMIRA [Suspect]
     Indication: RHEUMATOID ARTHRITIS
     Dates: start: 20100105
  2. METHOTREXATE [Concomitant]
     Indication: PRODUCT USED FOR UNKNOWN INDICATION
  3. PLAQUENIL [Concomitant]
     Indication: CUTANEOUS LUPUS ERYTHEMATOSUS

REACTIONS (4)
  - Macular hole [Unknown]
  - Injection site haemorrhage [Unknown]
  - Incorrect dose administered [Unknown]
  - Device malfunction [Unknown]
